FAERS Safety Report 5717253-X (Version None)
Quarter: 2008Q2

REPORT INFORMATION
  Report Type: 
  Country: None (occurrence: None)
  Receive Date: 20080424
  Receipt Date: 20080415
  Transmission Date: 20081010
  Serious: Yes (Hospitalization, Other)
  Sender: FDA-Public Use
  Company Number: PHFR2008IE01216

PATIENT
  Age: 57 Year
  Sex: Male

DRUGS (4)
  1. CLOZARIL [Suspect]
     Indication: SCHIZOPHRENIA
     Dosage: 650 MG, QD
     Route: 048
     Dates: start: 20050811
  2. FOLIC ACID [Concomitant]
     Dosage: 5MG DAILY
     Route: 065
  3. ZYPREXA [Concomitant]
     Dosage: 5MG DAILY
     Route: 065
  4. VALPROATE SODIUM [Concomitant]
     Dosage: 600MG DAILY
     Route: 065

REACTIONS (9)
  - BLOOD IRON DECREASED [None]
  - CHOREOATHETOSIS [None]
  - CONFUSIONAL STATE [None]
  - FATIGUE [None]
  - GAMMA-GLUTAMYLTRANSFERASE INCREASED [None]
  - NEUTROPHIL COUNT INCREASED [None]
  - TRANSFERRIN SATURATION DECREASED [None]
  - URINARY INCONTINENCE [None]
  - WHITE BLOOD CELL COUNT INCREASED [None]
